FAERS Safety Report 8838447 (Version 2)
Quarter: 2012Q4

REPORT INFORMATION
  Report Type: 
  Country: GR (occurrence: GR)
  Receive Date: 20121012
  Receipt Date: 20121101
  Transmission Date: 20130627
  Serious: Yes (Other)
  Sender: FDA-Public Use
  Company Number: GR-VERTEX PHARMACEUTICAL INC.-2012-022860

PATIENT
  Sex: Female

DRUGS (4)
  1. INCIVO [Suspect]
     Indication: HEPATITIS C
     Dosage: Dosage Form: Tablet
     Route: 048
     Dates: start: 201208
  2. RIBAVIRIN [Concomitant]
     Indication: HEPATITIS C
     Dosage: 800 mg, UNK
  3. RIBAVIRIN [Concomitant]
     Dosage: 1000 mg, UNK
  4. PEG-INTERFERON [Concomitant]
     Indication: HEPATITIS C
     Dosage: 135 mg, UNK

REACTIONS (5)
  - Blood urea increased [Not Recovered/Not Resolved]
  - Medication error [Recovered/Resolved]
  - Blood creatinine increased [Not Recovered/Not Resolved]
  - Blood uric acid increased [Recovered/Resolved]
  - Anaemia [Unknown]
